FAERS Safety Report 10203622 (Version 2)
Quarter: 2014Q2

REPORT INFORMATION
  Report Type: Spontaneous
  Country: US (occurrence: US)
  Receive Date: 20140529
  Receipt Date: 20140529
  Transmission Date: 20141212
  Serious: No
  Sender: FDA-Public Use
  Company Number: US-ASTRAZENECA-2014SE24932

PATIENT
  Age: 45 Year
  Sex: Female

DRUGS (2)
  1. SYMBICORT PMDI [Suspect]
     Dosage: 80/4.5 MCG, 2 PUFFS BID
     Route: 055
  2. OTHER [Concomitant]

REACTIONS (2)
  - Asthma [Unknown]
  - Circumstance or information capable of leading to medication error [Unknown]
